FAERS Safety Report 7150892-0 (Version None)
Quarter: 2010Q4

REPORT INFORMATION
  Report Type: 
  Country: None (occurrence: None)
  Receive Date: 20101210
  Receipt Date: 20101207
  Transmission Date: 20110411
  Serious: Yes (Hospitalization)
  Sender: FDA-Public Use
  Company Number: SK-ROCHE-746714

PATIENT
  Sex: Female
  Weight: 92 kg

DRUGS (1)
  1. TRASTUZUMAB [Suspect]
     Dosage: LAST DOSE: 24 NOV 2010
     Route: 058
     Dates: start: 20100514

REACTIONS (3)
  - ANGINA PECTORIS [None]
  - BLOOD PRESSURE INCREASED [None]
  - CHEST PAIN [None]
